FAERS Safety Report 18474759 (Version 1)
Quarter: 2020Q4

REPORT INFORMATION
  Report Type: Spontaneous
  Country: US (occurrence: US)
  Receive Date: 20201106
  Receipt Date: 20201106
  Transmission Date: 20210114
  Serious: Yes (Hospitalization, Other)
  Sender: FDA-Public Use
  Company Number: US-IPCA LABORATORIES LIMITED-IPC-2020-US-003360

PATIENT

DRUGS (1)
  1. PROPRANOLOL [Suspect]
     Active Substance: PROPRANOLOL HYDROCHLORIDE
     Indication: HYPERTENSION
     Dosage: UNK
     Route: 065

REACTIONS (9)
  - Toxicity to various agents [Recovering/Resolving]
  - Hyperglycaemia [Recovering/Resolving]
  - Overdose [Unknown]
  - Encephalopathy [Recovering/Resolving]
  - Hypotension [Recovering/Resolving]
  - Syncope [Recovering/Resolving]
  - Bradycardia [Recovering/Resolving]
  - Hyperkalaemia [Recovering/Resolving]
  - Cardiac arrest [Recovering/Resolving]
